FAERS Safety Report 5047899-6 (Version None)
Quarter: 2006Q3

REPORT INFORMATION
  Report Type: 
  Country: None (occurrence: None)
  Receive Date: 20060711
  Receipt Date: 20060706
  Transmission Date: 20061208
  Serious: Yes (Hospitalization)
  Sender: FDA-Public Use
  Company Number: US-GLAXOSMITHKLINE-A0611302A

PATIENT
  Sex: Male

DRUGS (12)
  1. AVODART [Suspect]
     Indication: BENIGN PROSTATIC HYPERPLASIA
     Dosage: .5MG PER DAY
     Route: 048
     Dates: start: 20051201, end: 20060401
  2. FLOMAX [Concomitant]
  3. TAMBOCOR [Concomitant]
  4. COUMADIN [Concomitant]
  5. LISINOPRIL [Concomitant]
  6. VITAMINE E [Concomitant]
  7. K-DUR 10 [Concomitant]
  8. CALTRATE [Concomitant]
  9. CENTRUM [Concomitant]
  10. VITAMINE C [Concomitant]
  11. VITAMIN B-12 [Concomitant]
  12. PROTONIX [Concomitant]

REACTIONS (3)
  - ABDOMINAL PAIN UPPER [None]
  - OESOPHAGEAL DISORDER [None]
  - PHARMACEUTICAL PRODUCT COMPLAINT [None]
